FAERS Safety Report 8481779-9 (Version None)
Quarter: 2012Q3

REPORT INFORMATION
  Report Type: 
  Country: None (occurrence: None)
  Receive Date: 20120702
  Receipt Date: 20120620
  Transmission Date: 20120928
  Serious: Yes (Hospitalization, Other)
  Sender: FDA-Public Use
  Company Number: JP-VERTEX PHARMACEUTICALS INC.-AE-2012-007327

PATIENT
  Age: 61 Year
  Sex: Male

DRUGS (17)
  1. PEG-INTRON [Concomitant]
     Route: 058
     Dates: start: 20120501, end: 20120529
  2. REBETOL [Concomitant]
     Indication: HEPATITIS C
     Route: 048
     Dates: start: 20120316, end: 20120404
  3. PEG-INTRON [Concomitant]
     Indication: HEPATITIS C
     Route: 058
     Dates: start: 20120316, end: 20120323
  4. REBETOL [Concomitant]
     Route: 048
     Dates: start: 20120409, end: 20120501
  5. AMLODIPINE [Concomitant]
     Route: 048
     Dates: start: 20120606
  6. LISINOPRIL [Concomitant]
     Route: 048
     Dates: end: 20120507
  7. TELAVIC (TELAPREVIR) [Suspect]
     Route: 048
     Dates: start: 20120529, end: 20120604
  8. REBETOL [Concomitant]
     Route: 048
     Dates: start: 20120508, end: 20120521
  9. AMLODIPINE [Concomitant]
     Route: 048
     Dates: start: 20120508, end: 20120605
  10. REBETOL [Concomitant]
     Route: 058
     Dates: start: 20120601, end: 20120603
  11. TELAVIC (TELAPREVIR) [Suspect]
     Indication: HEPATITIS C
     Route: 048
     Dates: start: 20120316, end: 20120404
  12. TELAVIC (TELAPREVIR) [Suspect]
     Route: 048
     Dates: start: 20120416, end: 20120528
  13. REBETOL [Concomitant]
     Route: 048
     Dates: start: 20120501, end: 20120508
  14. PNEUMOVAX 23 [Concomitant]
     Route: 051
  15. TELAVIC (TELAPREVIR) [Suspect]
     Route: 048
     Dates: start: 20120411, end: 20120416
  16. PEG-INTRON [Concomitant]
     Route: 058
     Dates: start: 20120330, end: 20120330
  17. PEG-INTRON [Concomitant]
     Route: 058
     Dates: start: 20120409, end: 20120424

REACTIONS (2)
  - ERYTHEMA [None]
  - HAEMOGLOBIN DECREASED [None]
